FAERS Safety Report 10440811 (Version 1)
Quarter: 2014Q3

REPORT INFORMATION
  Report Type: Spontaneous
  Country: US (occurrence: None)
  Receive Date: 20140908
  Receipt Date: 20140908
  Transmission Date: 20150326
  Serious: No
  Sender: FDA-Public Use
  Company Number: None

PATIENT
  Age: 43 Year
  Sex: Male
  Weight: 115.5 kg

DRUGS (1)
  1. HYDROCHLOROTHIAZIDE/LISINOPRIL [Suspect]
     Active Substance: HYDROCHLOROTHIAZIDE\LISINOPRIL
     Indication: ANGIOEDEMA
     Dosage: 12.5/20 MG EVERY DAY PO
     Route: 048
     Dates: start: 20140410, end: 20140624

REACTIONS (2)
  - Enlarged uvula [None]
  - Angioedema [None]

NARRATIVE: CASE EVENT DATE: 20140624
